FAERS Safety Report 5692857-1 (Version None)
Quarter: 2008Q2

REPORT INFORMATION
  Report Type: 
  Country: None (occurrence: None)
  Receive Date: 20080401
  Receipt Date: 20080317
  Transmission Date: 20081010
  Serious: Yes (Hospitalization)
  Sender: FDA-Public Use
  Company Number: DSA_31637_2008

PATIENT
  Age: 59 Year
  Sex: Female

DRUGS (1)
  1. TIAZAC [Suspect]
     Indication: DRUG USE FOR UNKNOWN INDICATION
     Dosage: 240 MG QD AT BEDTIME ORAL
     Route: 048
     Dates: start: 20071101

REACTIONS (5)
  - ASTHENIA [None]
  - ERYTHEMA [None]
  - FEELING HOT [None]
  - HEADACHE [None]
  - TACHYCARDIA [None]
